FAERS Safety Report 24593214 (Version 2)
Quarter: 2025Q1

REPORT INFORMATION
  Report Type: Spontaneous
  Country: CA (occurrence: CA)
  Receive Date: 20241108
  Receipt Date: 20250202
  Transmission Date: 20250408
  Serious: Yes (Other)
  Sender: TAKEDA
  Company Number: CA-TAKEDA-2024TUS093559

PATIENT
  Age: 36 Year
  Sex: Female

DRUGS (13)
  1. ENTYVIO [Suspect]
     Active Substance: VEDOLIZUMAB
     Indication: Colitis ulcerative
     Dosage: 108 MILLIGRAM, Q2WEEKS
     Dates: start: 20230104
  2. ENTYVIO [Suspect]
     Active Substance: VEDOLIZUMAB
     Dosage: 108 MILLIGRAM, Q2WEEKS
     Dates: start: 20240916
  3. ENTYVIO [Suspect]
     Active Substance: VEDOLIZUMAB
     Dosage: 108 MILLIGRAM, Q2WEEKS
  4. ENTYVIO [Suspect]
     Active Substance: VEDOLIZUMAB
     Dosage: 108 MILLIGRAM, 1/WEEK
  5. ENTYVIO [Suspect]
     Active Substance: VEDOLIZUMAB
     Dosage: 108 MILLIGRAM, 1/WEEK
  6. ENTYVIO [Suspect]
     Active Substance: VEDOLIZUMAB
     Indication: Colitis ulcerative
  7. PROZAC [Concomitant]
     Active Substance: FLUOXETINE HYDROCHLORIDE
  8. PREDNISONE [Concomitant]
     Active Substance: PREDNISONE
  9. LAMOTRIGINE [Concomitant]
     Active Substance: LAMOTRIGINE
     Dosage: 100 MILLIGRAM, BID
  10. CLONAZEPAM [Concomitant]
     Active Substance: CLONAZEPAM
     Dosage: UNK UNK, QD
  11. SEROQUEL [Concomitant]
     Active Substance: QUETIAPINE FUMARATE
  12. ASPIRIN [Concomitant]
     Active Substance: ASPIRIN
  13. FLUOXETINE [Concomitant]
     Active Substance: FLUOXETINE HYDROCHLORIDE
     Dosage: 60 MILLIGRAM, QD

REACTIONS (13)
  - Frequent bowel movements [Unknown]
  - Colitis ulcerative [Unknown]
  - Inappropriate schedule of product administration [Recovered/Resolved]
  - Abdominal pain upper [Unknown]
  - Off label use [Unknown]
  - Weight decreased [Unknown]
  - Abdominal discomfort [Unknown]
  - Dysarthria [Unknown]
  - Product distribution issue [Unknown]
  - Hyperhidrosis [Unknown]
  - Rhinorrhoea [Unknown]
  - Ear infection [Unknown]
  - Vomiting [Unknown]

NARRATIVE: CASE EVENT DATE: 20241211
